FAERS Safety Report 7728229-5 (Version None)
Quarter: 2011Q3

REPORT INFORMATION
  Report Type: 
  Country: None (occurrence: None)
  Receive Date: 20110905
  Receipt Date: 20110826
  Transmission Date: 20111222
  Serious: Yes (Other)
  Sender: FDA-Public Use
  Company Number: PHEH2007US15450

PATIENT
  Sex: Male
  Weight: 89.796 kg

DRUGS (18)
  1. LORTAB [Concomitant]
  2. LUPRON [Concomitant]
     Dosage: Q3MO
  3. KEFLEX [Concomitant]
  4. NOCTURA [Concomitant]
     Dosage: UNK
  5. PREDNISONE [Concomitant]
  6. CASODEX [Concomitant]
     Dosage: UNK
  7. CELEBREX [Concomitant]
  8. VIAGRA [Concomitant]
  9. TAXOTERE [Concomitant]
  10. TOPROL-XL [Concomitant]
  11. FLAGYL [Concomitant]
  12. LIPITOR [Concomitant]
  13. ZOCOR [Concomitant]
  14. NIASPAN [Concomitant]
  15. ZOMETA [Suspect]
     Indication: METASTASES TO BONE
     Dosage: 1 MG, QMO
     Dates: start: 20040401, end: 20060701
  16. PLAVIX [Concomitant]
  17. LEVITRA [Concomitant]
     Dosage: UNK
  18. CHEMOTHERAPEUTICS NOS [Concomitant]

REACTIONS (42)
  - PAIN [None]
  - SWELLING [None]
  - JAW DISORDER [None]
  - CONNECTIVE TISSUE INFLAMMATION [None]
  - JOINT STIFFNESS [None]
  - FATIGUE [None]
  - INJURY [None]
  - LOOSE TOOTH [None]
  - OSTEOMYELITIS [None]
  - BONE DISORDER [None]
  - PRIMARY SEQUESTRUM [None]
  - MASTICATION DISORDER [None]
  - DENTAL CARIES [None]
  - OEDEMA [None]
  - GINGIVAL HYPERPLASIA [None]
  - FISTULA DISCHARGE [None]
  - DYSPNOEA [None]
  - NIPPLE PAIN [None]
  - PHOTODERMATOSIS [None]
  - CARDIAC FAILURE CONGESTIVE [None]
  - NICOTINE DEPENDENCE [None]
  - ANAEMIA [None]
  - OSTEONECROSIS OF JAW [None]
  - RADIATION EXPOSURE [None]
  - OSTEOSCLEROSIS [None]
  - INCREASED TENDENCY TO BRUISE [None]
  - JOINT EFFUSION [None]
  - DECREASED INTEREST [None]
  - LOCAL SWELLING [None]
  - MICTURITION DISORDER [None]
  - GYNAECOMASTIA [None]
  - TENDON RUPTURE [None]
  - DRY SKIN [None]
  - LEFT ATRIAL DILATATION [None]
  - ANXIETY [None]
  - METASTASES TO BONE [None]
  - ARTERIOSCLEROSIS CORONARY ARTERY [None]
  - ORAL PAIN [None]
  - TOOTH INFECTION [None]
  - EXOSTOSIS [None]
  - SEXUAL DYSFUNCTION [None]
  - COUGH [None]
